FAERS Safety Report 21253156 (Version 5)
Quarter: 2023Q1

REPORT INFORMATION
  Report Type: Spontaneous
  Country: JP (occurrence: JP)
  Receive Date: 20220825
  Receipt Date: 20230225
  Transmission Date: 20230417
  Serious: Yes (Other)
  Sender: FDA-Public Use
  Company Number: JP-UNITED THERAPEUTICS-UNT-2022-019086

PATIENT
  Age: 7 Year
  Sex: Male
  Weight: 18 kg

DRUGS (17)
  1. UNITUXIN [Suspect]
     Active Substance: DINUTUXIMAB
     Indication: Neuroblastoma recurrent
     Dosage: 17.5 MG/M2, CYCLICAL (CYCLE 1)
     Route: 041
     Dates: start: 20220510, end: 202205
  2. UNITUXIN [Suspect]
     Active Substance: DINUTUXIMAB
     Dosage: 17.5 MG/M2, CYCLICAL (CYCLE 1)
     Route: 041
     Dates: start: 202205, end: 20220513
  3. UNITUXIN [Suspect]
     Active Substance: DINUTUXIMAB
     Dosage: 8.8 MG/M2, CYCLICAL (CYCLE 2)
     Route: 041
     Dates: start: 20220620, end: 20220623
  4. UNITUXIN [Suspect]
     Active Substance: DINUTUXIMAB
     Dosage: UNK, CYCLICAL (CYCLE 3)
     Route: 041
     Dates: start: 20220711, end: 20220714
  5. FILGRASTIM [Suspect]
     Active Substance: FILGRASTIM
     Indication: Neuroblastoma recurrent
     Dosage: 5 ?G/KG, UNK
     Route: 065
     Dates: start: 20220507, end: 20220520
  6. FILGRASTIM [Suspect]
     Active Substance: FILGRASTIM
     Dosage: 5 ?G/KG/DAY, UNK
     Route: 065
     Dates: start: 20220708, end: 20220721
  7. TECELEUKIN [Suspect]
     Active Substance: TECELEUKIN
     Indication: Neuroblastoma
     Dosage: 750,000 UNITS/M2
     Route: 065
     Dates: start: 20220613, end: 20220616
  8. TECELEUKIN [Suspect]
     Active Substance: TECELEUKIN
     Dosage: 1,000,000 UNITS/M2
     Route: 065
     Dates: start: 20220620, end: 20220623
  9. ACETAMINOPHEN [Concomitant]
     Active Substance: ACETAMINOPHEN
     Indication: Prophylaxis
     Dosage: UNK
     Route: 065
     Dates: start: 20220510, end: 20220514
  10. ACETAMINOPHEN [Concomitant]
     Active Substance: ACETAMINOPHEN
     Dosage: UNK
     Route: 065
     Dates: start: 20220613, end: 20220624
  11. ACETAMINOPHEN [Concomitant]
     Active Substance: ACETAMINOPHEN
     Dosage: UNK
     Route: 065
     Dates: start: 20220711, end: 20220715
  12. HYDROXYZINE [Concomitant]
     Active Substance: HYDROXYZINE HYDROCHLORIDE
     Indication: Prophylaxis
     Dosage: UNK
     Route: 065
     Dates: start: 20220510, end: 20220514
  13. HYDROXYZINE [Concomitant]
     Active Substance: HYDROXYZINE HYDROCHLORIDE
     Dosage: UNK
     Route: 065
     Dates: start: 20220613, end: 20220624
  14. HYDROXYZINE [Concomitant]
     Active Substance: HYDROXYZINE HYDROCHLORIDE
     Dosage: UNK
     Route: 065
     Dates: start: 20220711, end: 20220715
  15. FENTANYL [Concomitant]
     Active Substance: FENTANYL
     Indication: Prophylaxis
     Dosage: UNK
     Route: 065
     Dates: start: 20220510, end: 20220514
  16. FENTANYL [Concomitant]
     Active Substance: FENTANYL
     Dosage: UNK
     Route: 065
     Dates: start: 20220620, end: 20220624
  17. FENTANYL [Concomitant]
     Active Substance: FENTANYL
     Dosage: UNK
     Route: 065
     Dates: start: 20220711, end: 20220715

REACTIONS (8)
  - Neuroblastoma [Unknown]
  - Vision blurred [Recovered/Resolved]
  - Eye pain [Recovered/Resolved]
  - Pyrexia [Recovered/Resolved]
  - Pyrexia [Recovered/Resolved]
  - Urticaria [Recovered/Resolved]
  - Aspartate aminotransferase increased [Recovered/Resolved]
  - Abdominal pain [Recovered/Resolved]

NARRATIVE: CASE EVENT DATE: 20220511
